FAERS Safety Report 18327834 (Version 1)
Quarter: 2020Q3

REPORT INFORMATION
  Report Type: Report from Study
  Country: BR (occurrence: BR)
  Receive Date: 20200930
  Receipt Date: 20200930
  Transmission Date: 20201103
  Serious: Yes (Life-Threatening, Disabling, Other)
  Sender: FDA-Public Use
  Company Number: BR-ORION CORPORATION ORION PHARMA-ENTC2020-0264

PATIENT
  Age: 58 Year
  Sex: Female

DRUGS (2)
  1. ROSULIB [Suspect]
     Active Substance: ROSUVASTATIN
     Indication: PRODUCT USED FOR UNKNOWN INDICATION
     Route: 065
  2. STALEVO [Suspect]
     Active Substance: CARBIDOPA\ENTACAPONE\LEVODOPA
     Indication: PRODUCT USED FOR UNKNOWN INDICATION
     Dosage: CONTINUOUS USE. STRENGTH: 100/25/200
     Route: 065
     Dates: start: 2014

REACTIONS (6)
  - Gait disturbance [Unknown]
  - Fatigue [Unknown]
  - Movement disorder [Unknown]
  - Parkinson^s disease [Unknown]
  - Mobility decreased [Unknown]
  - Feeling abnormal [Unknown]

NARRATIVE: CASE EVENT DATE: 20200921
